FAERS Safety Report 9406511 (Version 1)
Quarter: 2013Q3

REPORT INFORMATION
  Report Type: Spontaneous
  Country: GB (occurrence: GB)
  Receive Date: 20130718
  Receipt Date: 20130718
  Transmission Date: 20140515
  Serious: Yes (Other)
  Sender: FDA-Public Use
  Company Number: GB-BRISTOL-MYERS SQUIBB COMPANY-19106186

PATIENT
  Age: 27 Year
  Sex: Male

DRUGS (1)
  1. BYDUREON [Suspect]

REACTIONS (1)
  - Bladder cancer [Unknown]
